FAERS Safety Report 8841843 (Version 3)
Quarter: 2013Q3

REPORT INFORMATION
  Report Type: Spontaneous
  Country: ES (occurrence: ES)
  Receive Date: 20121016
  Receipt Date: 20130718
  Transmission Date: 20140515
  Serious: Yes (Hospitalization)
  Sender: FDA-Public Use
  Company Number: ES-SANOFI-AVENTIS-2012SA074445

PATIENT
  Age: 72 Year
  Sex: Male

DRUGS (27)
  1. IVABRADINE HYDROCHLORIDE [Concomitant]
     Indication: ANGINA PECTORIS
     Dates: start: 20111004
  2. IVABRADINE HYDROCHLORIDE [Concomitant]
     Indication: ANGINA PECTORIS
     Dates: start: 20120321
  3. PLAVIX [Suspect]
     Indication: PRODUCT USED FOR UNKNOWN INDICATION
     Route: 065
  4. PLACEBO [Concomitant]
     Indication: TYPE 2 DIABETES MELLITUS
     Route: 065
     Dates: start: 20100923, end: 20120528
  5. PLACEBO [Concomitant]
     Indication: TYPE 2 DIABETES MELLITUS
     Route: 065
     Dates: start: 20120920
  6. ASPIRIN [Concomitant]
     Dosage: DOSE: MORE THAN 100 MG
     Route: 065
     Dates: start: 20101220
  7. ASPIRIN [Concomitant]
     Dosage: DOSE: MORE THAN 100 MG
     Route: 065
     Dates: start: 20100915
  8. ASPIRIN [Concomitant]
     Dosage: DOSE: MORE THAN 100 MG
     Route: 065
     Dates: start: 20110405
  9. ASPIRIN [Concomitant]
     Dosage: DOSE: MORE THAN 100 MG
     Route: 065
     Dates: start: 20111227
  10. ASPIRIN [Concomitant]
     Dosage: DOSE: MORE THAN 100 MG
     Route: 065
     Dates: start: 20110620
  11. ASPIRIN [Concomitant]
     Dosage: DOSE: MORE THAN 100 MG
     Route: 065
     Dates: start: 20111004
  12. ASPIRIN [Concomitant]
     Dosage: DOSE: MORE THAN 100 MG
     Route: 065
     Dates: start: 20120321
  13. GLIBENCLAMIDE [Concomitant]
     Indication: TYPE 2 DIABETES MELLITUS
  14. TRIMETAZIDINE [Concomitant]
     Indication: ANGINA PECTORIS
     Dates: start: 20101220
  15. TRIMETAZIDINE [Concomitant]
     Indication: ANGINA PECTORIS
     Dates: start: 20100915
  16. TRIMETAZIDINE [Concomitant]
     Indication: ANGINA PECTORIS
     Dates: start: 20111227
  17. TRIMETAZIDINE [Concomitant]
     Indication: ANGINA PECTORIS
     Dates: start: 20111004
  18. TRIMETAZIDINE [Concomitant]
     Indication: ANGINA PECTORIS
     Dates: start: 20120321
  19. RANOLAZINE [Concomitant]
     Indication: ANGINA PECTORIS
     Dates: start: 20101220
  20. RANOLAZINE [Concomitant]
     Indication: ANGINA PECTORIS
     Dates: start: 20100915
  21. RANOLAZINE [Concomitant]
     Indication: ANGINA PECTORIS
     Dates: start: 20111227
  22. RANOLAZINE [Concomitant]
     Indication: ANGINA PECTORIS
     Dates: start: 20111004
  23. RANOLAZINE [Concomitant]
     Indication: ANGINA PECTORIS
     Dates: start: 20120627
  24. RANOLAZINE [Concomitant]
     Indication: ANGINA PECTORIS
     Dates: start: 20120321
  25. IVABRADINE HYDROCHLORIDE [Concomitant]
     Indication: ANGINA PECTORIS
     Dates: start: 20101220
  26. IVABRADINE HYDROCHLORIDE [Concomitant]
     Indication: ANGINA PECTORIS
     Dates: start: 20100915
  27. IVABRADINE HYDROCHLORIDE [Concomitant]
     Indication: ANGINA PECTORIS
     Dates: start: 20111227

REACTIONS (2)
  - Musculoskeletal chest pain [Recovered/Resolved]
  - Haemorrhagic erosive gastritis [Recovering/Resolving]
